FAERS Safety Report 15269802 (Version 3)
Quarter: 2021Q3

REPORT INFORMATION
  Report Type: Report from Study
  Country: US (occurrence: US)
  Receive Date: 20180813
  Receipt Date: 20210928
  Transmission Date: 20211014
  Serious: No
  Sender: FDA-Public Use
  Company Number: US-SHIRE-US201831178

PATIENT
  Sex: Female

DRUGS (8)
  1. TEDUGLUTIDE [Suspect]
     Active Substance: TEDUGLUTIDE
     Indication: SHORT-BOWEL SYNDROME
     Dosage: 2.2 MILLILITER, QD
     Route: 050
     Dates: start: 20151109
  2. TEDUGLUTIDE [Suspect]
     Active Substance: TEDUGLUTIDE
     Dosage: 0.207 MILLILITER, QD
     Route: 058
     Dates: start: 20151109
  3. TEDUGLUTIDE [Suspect]
     Active Substance: TEDUGLUTIDE
     Indication: SHORT-BOWEL SYNDROME
     Dosage: 2.2 MILLILITER, QD
     Route: 050
     Dates: start: 20151109
  4. TEDUGLUTIDE [Suspect]
     Active Substance: TEDUGLUTIDE
     Indication: SHORT-BOWEL SYNDROME
     Dosage: 2.2 MILLILITER, QD
     Route: 050
     Dates: start: 20151109
  5. TEDUGLUTIDE [Suspect]
     Active Substance: TEDUGLUTIDE
     Dosage: 0.207 MILLILITER, QD
     Route: 058
     Dates: start: 20151109
  6. TEDUGLUTIDE [Suspect]
     Active Substance: TEDUGLUTIDE
     Dosage: 0.207 MILLILITER, QD
     Route: 058
     Dates: start: 20151109
  7. TEDUGLUTIDE [Suspect]
     Active Substance: TEDUGLUTIDE
     Indication: SHORT-BOWEL SYNDROME
     Dosage: 2.2 MILLILITER, QD
     Route: 050
     Dates: start: 20151109
  8. TEDUGLUTIDE [Suspect]
     Active Substance: TEDUGLUTIDE
     Dosage: 0.207 MILLILITER, QD
     Route: 058
     Dates: start: 20151109

REACTIONS (3)
  - Injection site pain [Unknown]
  - Constipation [Recovering/Resolving]
  - Injection site swelling [Unknown]
